FAERS Safety Report 7275262-6 (Version None)
Quarter: 2011Q1

REPORT INFORMATION
  Report Type: 
  Country: None (occurrence: None)
  Receive Date: 20110204
  Receipt Date: 20110124
  Transmission Date: 20110831
  Serious: Yes (Other)
  Sender: FDA-Public Use
  Company Number: KR-ROCHE-755210

PATIENT
  Age: 15 Year
  Sex: Female

DRUGS (3)
  1. TAMIFLU [Suspect]
     Dosage: FOR 5 DAYS
     Route: 048
  2. ANTIDEPRESSANT NOS [Suspect]
     Indication: DEPRESSION
     Route: 065
  3. ANTIDEPRESSANT NOS [Suspect]
     Dosage: DOSE REDUCED.
     Route: 065

REACTIONS (3)
  - MANIA [None]
  - SUICIDAL IDEATION [None]
  - DEPRESSION [None]
